FAERS Safety Report 14239328 (Version 5)
Quarter: 2018Q1

REPORT INFORMATION
  Report Type: Spontaneous
  Country: IT (occurrence: IT)
  Receive Date: 20171130
  Receipt Date: 20180319
  Transmission Date: 20180508
  Serious: Yes (Hospitalization)
  Sender: FDA-Public Use
  Company Number: IT-JNJFOC-20171132064

PATIENT
  Age: 78 Year
  Sex: Male
  Weight: 70 kg

DRUGS (22)
  1. MATRIFEN [Suspect]
     Active Substance: FENTANYL
     Indication: ARTHRALGIA
     Dosage: 50 MCG EVERY 1 HOUR (EVERY 3 DAYS) CYCLIC
     Route: 062
     Dates: start: 20170726
  2. MATRIFEN [Suspect]
     Active Substance: FENTANYL
     Indication: PAIN IN EXTREMITY
     Dosage: 50 MCG EVERY 1 HOUR (EVERY 3 DAYS) CYCLIC
     Route: 062
     Dates: start: 20170726
  3. ABIRATERONE ACETATE. [Suspect]
     Active Substance: ABIRATERONE ACETATE
     Indication: PROSTATE CANCER
     Route: 048
     Dates: start: 20151020
  4. SOLDESAM [Concomitant]
     Active Substance: DEXAMETHASONE
     Indication: ARTHRALGIA
     Route: 048
     Dates: start: 20170802
  5. CALCIUM GLUCONATE. [Concomitant]
     Active Substance: CALCIUM GLUCONATE
     Indication: HYPOCALCAEMIA
     Dosage: CUMULATIVE DOSE TO FIRST REACTION 10.5 DOSE
     Route: 048
     Dates: start: 20170823, end: 20170919
  6. FENTANYL CITRATE. [Concomitant]
     Active Substance: FENTANYL CITRATE
     Indication: PAIN IN EXTREMITY
     Dosage: AS REQUIRED
     Route: 048
     Dates: start: 20170901
  7. LYRICA [Concomitant]
     Active Substance: PREGABALIN
     Indication: PAIN IN EXTREMITY
     Dosage: 150 MG A DAY
     Route: 048
     Dates: start: 200107
  8. ORAMORPH [Concomitant]
     Active Substance: MORPHINE SULFATE
     Indication: PAIN IN EXTREMITY
     Dosage: AS REQUIRED
     Route: 048
     Dates: start: 20170726
  9. OXYCONTIN [Suspect]
     Active Substance: OXYCODONE HYDROCHLORIDE
     Indication: PAIN IN EXTREMITY
     Dosage: 20 MG A DAY
     Route: 048
     Dates: start: 20170803
  10. PREDNISONE. [Suspect]
     Active Substance: PREDNISONE
     Indication: PROSTATE CANCER
     Route: 048
     Dates: start: 20151020
  11. ENANTONE LP [Concomitant]
     Active Substance: LEUPROLIDE ACETATE
     Indication: PROSTATE CANCER
     Route: 030
     Dates: start: 20121101
  12. OXYCONTIN [Suspect]
     Active Substance: OXYCODONE HYDROCHLORIDE
     Indication: ARTHRALGIA
     Dosage: 20 MG A DAY
     Route: 048
     Dates: start: 20170803
  13. FENTANYL CITRATE. [Concomitant]
     Active Substance: FENTANYL CITRATE
     Indication: PAIN IN EXTREMITY
     Dosage: AS REQUIRED
     Route: 048
     Dates: start: 20170901
  14. ORAMORPH [Concomitant]
     Active Substance: MORPHINE SULFATE
     Indication: ARTHRALGIA
     Dosage: AS REQUIRED
     Route: 048
     Dates: start: 20170726
  15. TACHIPIRINA [Concomitant]
     Active Substance: ACETAMINOPHEN
     Indication: PAIN IN EXTREMITY
     Dosage: 2000 MG A DAY
     Route: 048
     Dates: start: 20170901, end: 20171003
  16. TACHIPIRINA [Concomitant]
     Active Substance: ACETAMINOPHEN
     Indication: PAIN IN EXTREMITY
     Dosage: 2000 MG A DAY
     Route: 048
     Dates: start: 20170901, end: 20171003
  17. VELLOFENT [Concomitant]
     Indication: PAIN IN EXTREMITY
     Dosage: AS REQUIRED
     Route: 048
  18. ENZALUTAMIDE [Suspect]
     Active Substance: ENZALUTAMIDE
     Indication: PROSTATE CANCER
     Route: 048
     Dates: start: 20140603
  19. SOLDESAM [Concomitant]
     Active Substance: DEXAMETHASONE
     Indication: PAIN IN EXTREMITY
     Route: 048
     Dates: start: 20170802
  20. DELTACORTENE [Concomitant]
     Active Substance: PREDNISONE
     Indication: PAIN IN EXTREMITY
     Route: 048
     Dates: start: 201709
  21. DELTACORTENE [Concomitant]
     Active Substance: PREDNISONE
     Indication: ARTHRALGIA
     Route: 048
     Dates: start: 201709
  22. ZOMETA [Concomitant]
     Active Substance: ZOLEDRONIC ACID
     Indication: PROSTATE CANCER
     Route: 042
     Dates: start: 20111108, end: 20170727

REACTIONS (2)
  - Weight decreased [Recovered/Resolved]
  - Decreased appetite [Recovered/Resolved]

NARRATIVE: CASE EVENT DATE: 20170912
